FAERS Safety Report 5250698-3 (Version None)
Quarter: 2007Q1

REPORT INFORMATION
  Report Type: 
  Country: None (occurrence: None)
  Receive Date: 20070228
  Receipt Date: 20060621
  Transmission Date: 20070707
  Serious: No
  Sender: FDA-Public Use
  Company Number: US-GLAXOSMITHKLINE-A0609837A

PATIENT
  Sex: Male

DRUGS (3)
  1. LAMICTAL [Suspect]
     Dosage: 100MG TWICE PER DAY
     Route: 048
  2. KEPPRA [Concomitant]
  3. LIPITOR [Concomitant]

REACTIONS (3)
  - LIP SWELLING [None]
  - RASH [None]
  - SWELLING FACE [None]
